FAERS Safety Report 4374279-9 (Version None)
Quarter: 2004Q2

REPORT INFORMATION
  Report Type: 
  Country: None (occurrence: None)
  Receive Date: 20040603
  Receipt Date: 20040519
  Transmission Date: 20050107
  Serious: Yes (Death)
  Sender: FDA-Public Use
  Company Number: JP_040503173

PATIENT
  Age: 90 Year
  Sex: Male

DRUGS (4)
  1. VANCOMYCIN [Suspect]
     Indication: PNEUMONIA STAPHYLOCOCCAL
     Dosage: 1000 MG DAY
     Dates: start: 20040515
  2. TOLEDOMIN (MILNACIPRAN HYDROCHLORIDE) [Concomitant]
  3. PREDNISOLONE [Concomitant]
  4. PREDNISOLONE SODIUM SUCCINATE INJ [Concomitant]

REACTIONS (1)
  - HEPATIC FAILURE [None]
